FAERS Safety Report 10503561 (Version 1)
Quarter: 2014Q4

REPORT INFORMATION
  Report Type: Spontaneous
  Country: US (occurrence: None)
  Receive Date: 20141006
  Receipt Date: 20141006
  Transmission Date: 20150528
  Serious: Yes (Hospitalization)
  Sender: FDA-Public Use
  Company Number: None

PATIENT
  Age: 71 Year
  Sex: Male
  Weight: 87.8 kg

DRUGS (2)
  1. PREGABALIN. [Suspect]
     Active Substance: PREGABALIN
     Dosage: 75 MG OTHER PO
     Route: 048
     Dates: start: 20140306, end: 20140822
  2. PREGABALIN. [Suspect]
     Active Substance: PREGABALIN
     Indication: NEURALGIA
     Dosage: 75 MG OTHER PO
     Route: 048
     Dates: start: 20140306, end: 20140822

REACTIONS (9)
  - Dermatitis [None]
  - Tremor [None]
  - Peripheral swelling [None]
  - Chills [None]
  - Asthenia [None]
  - Myoclonus [None]
  - Mental status changes [None]
  - Somnolence [None]
  - Hallucination [None]

NARRATIVE: CASE EVENT DATE: 20140822
